FAERS Safety Report 7547682-3 (Version None)
Quarter: 2011Q2

REPORT INFORMATION
  Report Type: 
  Country: None (occurrence: None)
  Receive Date: 20110614
  Receipt Date: 20110201
  Transmission Date: 20111010
  Serious: No
  Sender: FDA-Public Use
  Company Number: US-BAYER-2011-012489

PATIENT
  Age: 40 Year
  Sex: Female

DRUGS (1)
  1. FINACEA [Suspect]
     Dosage: UNK

REACTIONS (4)
  - PRURITUS [None]
  - ROSACEA [None]
  - ACNE [None]
  - PARAESTHESIA [None]
